FAERS Safety Report 15228083 (Version 2)
Quarter: 2018Q3

REPORT INFORMATION
  Report Type: Spontaneous
  Country: BG (occurrence: BG)
  Receive Date: 20180801
  Receipt Date: 20180828
  Transmission Date: 20181010
  Serious: Yes (Hospitalization, Other)
  Sender: FDA-Public Use
  Company Number: BG-SA-2018SA200576

PATIENT
  Age: 45 Year
  Sex: Male

DRUGS (2)
  1. HYDROCHLOROTHIAZIDE/IRBESARTAN [Suspect]
     Active Substance: HYDROCHLOROTHIAZIDE\IRBESARTAN
     Indication: HYPERTENSION
     Dosage: IRBESARTAN/HYDROCHLOROTHIAZIDE 150 MG/12.5 MG (1?0?0).
  2. ACETYLSALICYLIC ACID [Suspect]
     Active Substance: ASPIRIN
     Indication: HYPERTENSION
     Dosage: 100 MG, QD (0?0?1)

REACTIONS (6)
  - Psoriasis [Unknown]
  - Periodontitis [Unknown]
  - Malignant melanoma [Unknown]
  - Papule [Unknown]
  - Macular pigmentation [Unknown]
  - Fungal infection [Unknown]
